FAERS Safety Report 19024643 (Version 1)
Quarter: 2021Q1

REPORT INFORMATION
  Report Type: Spontaneous
  Country: US (occurrence: US)
  Receive Date: 20210318
  Receipt Date: 20210318
  Transmission Date: 20210420
  Serious: Yes (Other)
  Sender: FDA-Public Use
  Company Number: US-SA-2021SA086716

PATIENT
  Sex: Male

DRUGS (1)
  1. ELITEK [Suspect]
     Active Substance: RASBURICASE
     Dosage: DRUG STRUCTURE DOSAGE : UNKNOWN DRUG INTERVAL DOSAGE : UNKNOWN

REACTIONS (2)
  - Condition aggravated [Unknown]
  - Tumour lysis syndrome [Unknown]
